FAERS Safety Report 11912281 (Version 1)
Quarter: 2016Q1

REPORT INFORMATION
  Report Type: Spontaneous
  Country: US (occurrence: US)
  Receive Date: 20160113
  Receipt Date: 20160113
  Transmission Date: 20160526
  Serious: No
  Sender: FDA-Public Use
  Company Number: US-ALKEM-001002

PATIENT
  Sex: Female

DRUGS (2)
  1. GABAPENTIN NORTHSTAR RX [Suspect]
     Active Substance: GABAPENTIN
     Indication: HEADACHE
     Dosage: 1-2 TABLETS FOR EVERY FOUR HOURS
  2. GABAPENTIN ASCEND LABS [Suspect]
     Active Substance: GABAPENTIN
     Indication: HEADACHE
     Dosage: 3-100 MG CAPSULES
     Dates: start: 20150505

REACTIONS (5)
  - Somnolence [Unknown]
  - Dyskinesia [Not Recovered/Not Resolved]
  - Feeling abnormal [Unknown]
  - Off label use [Unknown]
  - Dizziness [Unknown]

NARRATIVE: CASE EVENT DATE: 20150505
